FAERS Safety Report 9581343 (Version 5)
Quarter: 2015Q2

REPORT INFORMATION
  Report Type: Spontaneous
  Country: US (occurrence: US)
  Receive Date: 20131002
  Receipt Date: 20150622
  Transmission Date: 20150821
  Serious: Yes (Hospitalization, Other)
  Sender: FDA-Public Use
  Company Number: US-GLAXOSMITHKLINE-A1043613A

PATIENT
  Sex: Male

DRUGS (6)
  1. VIMPAT [Suspect]
     Active Substance: LACOSAMIDE
     Indication: PRODUCT USED FOR UNKNOWN INDICATION
     Route: 065
     Dates: start: 2013
  2. LAMICTAL [Suspect]
     Active Substance: LAMOTRIGINE
     Dosage: TWO 200MG TABLETS TWICE DAILY
     Route: 048
     Dates: start: 20140707
  3. COUMADIN [Concomitant]
     Active Substance: WARFARIN SODIUM
  4. LAMICTAL [Suspect]
     Active Substance: LAMOTRIGINE
     Indication: SEIZURE
     Dosage: 400 MG, BID
     Route: 048
     Dates: start: 201406
  5. LAMICTAL XR [Suspect]
     Active Substance: LAMOTRIGINE
     Dosage: UNK
     Dates: start: 20150528
  6. LAMICTAL XR [Suspect]
     Active Substance: LAMOTRIGINE
     Indication: SEIZURE
     Dosage: 200 MG TABLETS-EXTENDED RELEASE AT UNKNOWN DOSING800MG TWICE DAILY
     Route: 065
     Dates: start: 20120308

REACTIONS (7)
  - Drug dispensing error [Unknown]
  - Seizure [Unknown]
  - Dizziness [Recovered/Resolved]
  - Feeling abnormal [Unknown]
  - Vision blurred [Not Recovered/Not Resolved]
  - Overdose [Unknown]
  - Somnolence [Recovering/Resolving]

NARRATIVE: CASE EVENT DATE: 2013
